FAERS Safety Report 9798658 (Version 1)
Quarter: 2014Q1

REPORT INFORMATION
  Report Type: Spontaneous
  Country: US (occurrence: US)
  Receive Date: 20140106
  Receipt Date: 20140106
  Transmission Date: 20141002
  Serious: No
  Sender: FDA-Public Use
  Company Number: US-GILEAD-2010-0029686

PATIENT
  Sex: Female
  Weight: 58.97 kg

DRUGS (13)
  1. LETAIRIS [Suspect]
     Indication: PULMONARY ARTERIAL HYPERTENSION
     Route: 048
     Dates: start: 20100212
  2. CLARITIN [Concomitant]
  3. NASONEX [Concomitant]
  4. VASOTEC [Concomitant]
  5. PRILOSEC [Concomitant]
  6. LASIX [Concomitant]
  7. TYLENOL [Concomitant]
  8. CALCITRIOL [Concomitant]
  9. NORVASC [Concomitant]
  10. HUMIRA [Concomitant]
  11. VERAMYST [Concomitant]
  12. SALINE [Concomitant]
  13. ALBUTEROL [Concomitant]

REACTIONS (1)
  - Oedema [Unknown]
